FAERS Safety Report 6424493-3 (Version None)
Quarter: 2009Q4

REPORT INFORMATION
  Report Type: 
  Country: None (occurrence: None)
  Receive Date: 20091103
  Receipt Date: 20091027
  Transmission Date: 20100525
  Serious: Yes (Other)
  Sender: FDA-Public Use
  Company Number: US-ROCHE-662309

PATIENT
  Sex: Female
  Weight: 72.6 kg

DRUGS (2)
  1. CAPECITABINE [Suspect]
     Indication: COLON CANCER
     Dosage: DOSE: 3 TABLETS IN THE MORNING
     Route: 048
     Dates: start: 20080610
  2. BEVACIZUMAB [Suspect]
     Indication: COLON CANCER
     Route: 042

REACTIONS (1)
  - MALIGNANT NEOPLASM PROGRESSION [None]
